FAERS Safety Report 11649022 (Version 3)
Quarter: 2018Q3

REPORT INFORMATION
  Report Type: Report from Study
  Country: GB (occurrence: GB)
  Receive Date: 20151021
  Receipt Date: 20180822
  Transmission Date: 20181010
  Serious: Yes (Hospitalization, Other)
  Sender: FDA-Public Use
  Company Number: GB-TAKEDA-2015TEU007264

PATIENT
  Age: 82 Year
  Sex: Male
  Weight: 86.4 kg

DRUGS (16)
  1. BLINDED PLACEBO [Suspect]
     Active Substance: INVESTIGATIONAL PRODUCT
     Indication: COGNITIVE DISORDER
     Dosage: UNK, QD
     Route: 048
     Dates: start: 20141114, end: 20150902
  2. OMEGA 3                            /01334101/ [Concomitant]
     Active Substance: OMEGA-3 FATTY ACIDS
     Indication: SUPPLEMENTATION THERAPY
     Dosage: UNK
     Route: 048
  3. GLUCOSAMINE [Concomitant]
     Active Substance: GLUCOSAMINE
     Indication: SUPPLEMENTATION THERAPY
     Dosage: UNK
     Route: 048
  4. TAMSULOSIN [Concomitant]
     Active Substance: TAMSULOSIN
     Indication: BENIGN PROSTATIC HYPERPLASIA
     Dosage: 400 UG, UNK
     Route: 048
     Dates: start: 201504
  5. SIMVASTATIN. [Concomitant]
     Active Substance: SIMVASTATIN
     Indication: BLOOD CHOLESTEROL INCREASED
     Dosage: 40 MG, QD
     Route: 048
  6. CONTIFLO [Concomitant]
     Active Substance: TAMSULOSIN
     Indication: BENIGN PROSTATIC HYPERPLASIA
     Dosage: 400 UG, QD
     Route: 048
     Dates: start: 201412
  7. BLEPHASOL [Concomitant]
     Indication: DRY EYE
     Dosage: UNK
     Route: 047
     Dates: start: 20130829
  8. ACICLOVIR [Concomitant]
     Active Substance: ACYCLOVIR
     Indication: GENITAL HERPES
     Dosage: 200 MG, UNK
     Route: 048
     Dates: start: 20130829
  9. PRESERVISION LUTEIN [Concomitant]
     Active Substance: MINERALS\VITAMINS
     Indication: SUPPLEMENTATION THERAPY
     Dosage: UNK, BID
     Route: 048
     Dates: start: 2012
  10. LAXIDO                             /07474401/ [Concomitant]
     Indication: CONSTIPATION
     Dosage: UNK
     Route: 048
     Dates: start: 2014
  11. TOLTERODINE TARTRATE. [Concomitant]
     Active Substance: TOLTERODINE TARTRATE
     Indication: BENIGN PROSTATIC HYPERPLASIA
     Dosage: 1 MG, UNK
     Route: 048
  12. SYSTANE BALANCE [Concomitant]
     Active Substance: PROPYLENE GLYCOL
     Indication: DRY EYE
     Dosage: 10 ML, QID
     Route: 047
     Dates: start: 2013
  13. TADALAFIL [Concomitant]
     Active Substance: TADALAFIL
     Indication: BENIGN PROSTATIC HYPERPLASIA
     Dosage: 10 MG, UNK
     Route: 048
     Dates: start: 201504
  14. SOLIFENACIN [Concomitant]
     Active Substance: SOLIFENACIN
     Indication: BENIGN PROSTATIC HYPERPLASIA
     Dosage: 5 MG, BID
     Route: 048
     Dates: start: 201504
  15. BLINDED PIOGLITAZONE [Suspect]
     Active Substance: PIOGLITAZONE
     Indication: COGNITIVE DISORDER
     Dosage: UNK, QD
     Route: 048
     Dates: start: 20141114, end: 20150902
  16. ARTELAC NIGHTTIME [Concomitant]
     Indication: DRY EYE
     Dosage: 1 GTT, QD
     Route: 047
     Dates: start: 20130829

REACTIONS (3)
  - Benign prostatic hyperplasia [Recovered/Resolved]
  - Urethral obstruction [Recovered/Resolved]
  - Bladder cancer stage 0, with cancer in situ [Recovering/Resolving]

NARRATIVE: CASE EVENT DATE: 20150713
